FAERS Safety Report 12381503 (Version 1)
Quarter: 2016Q2

REPORT INFORMATION
  Report Type: Spontaneous
  Country: US (occurrence: US)
  Receive Date: 20160518
  Receipt Date: 20160518
  Transmission Date: 20160815
  Serious: No
  Sender: FDA-Public Use
  Company Number: US-EISAI MEDICAL RESEARCH-EC-2016-016771

PATIENT
  Age: 19 Year
  Sex: Male

DRUGS (4)
  1. FYCOMPA [Suspect]
     Active Substance: PERAMPANEL
     Indication: SEIZURE
     Route: 048
     Dates: start: 201504
  2. KEPPRA [Concomitant]
     Active Substance: LEVETIRACETAM
     Indication: SEIZURE
  3. BANZEL [Concomitant]
     Active Substance: RUFINAMIDE
     Indication: SEIZURE
  4. VIMPAT [Concomitant]
     Active Substance: LACOSAMIDE
     Indication: SEIZURE

REACTIONS (2)
  - Sensitivity of teeth [Unknown]
  - Loose tooth [Unknown]

NARRATIVE: CASE EVENT DATE: 201605
